FAERS Safety Report 17929741 (Version 2)
Quarter: 2021Q2

REPORT INFORMATION
  Report Type: Spontaneous
  Country: US (occurrence: US)
  Receive Date: 20200623
  Receipt Date: 20210615
  Transmission Date: 20210717
  Serious: Yes (Other)
  Sender: FDA-Public Use
  Company Number: US-ALLERGAN-2004920US

PATIENT
  Age: 36 Year
  Sex: Female

DRUGS (1)
  1. KYBELLA [Suspect]
     Active Substance: DEOXYCHOLIC ACID
     Indication: FAT TISSUE INCREASED
     Dosage: 2 VIALS, 4.2 ML TOTAL, APPROXIMATELY 20 INJECTIONS OF 0.2 ML EACH, USING GRID
     Route: 058
     Dates: start: 20200130, end: 20200130

REACTIONS (7)
  - Injection site pain [Recovered/Resolved]
  - Injection site scar [Unknown]
  - Injection site discomfort [Recovered/Resolved]
  - Skin discolouration [Recovered/Resolved]
  - Injection site pallor [Recovered/Resolved]
  - Injection site necrosis [Recovered/Resolved]
  - Product administration error [Unknown]

NARRATIVE: CASE EVENT DATE: 20200130
